FAERS Safety Report 10429815 (Version 1)
Quarter: 2014Q3

REPORT INFORMATION
  Report Type: Spontaneous
  Country: US (occurrence: US)
  Receive Date: 20140904
  Receipt Date: 20140904
  Transmission Date: 20150326
  Serious: Yes (Other)
  Sender: FDA-Public Use
  Company Number: US-BAYER-2014-129524

PATIENT
  Age: 18 Year
  Sex: Female
  Weight: 58.5 kg

DRUGS (2)
  1. YAZ [Suspect]
     Active Substance: DROSPIRENONE\ETHINYL ESTRADIOL
  2. ACCUTANE [Concomitant]
     Active Substance: ISOTRETINOIN
     Indication: ACNE

REACTIONS (2)
  - Thrombophlebitis superficial [None]
  - Deep vein thrombosis [Recovering/Resolving]

NARRATIVE: CASE EVENT DATE: 20090708
